FAERS Safety Report 10411800 (Version 2)
Quarter: 2014Q4

REPORT INFORMATION
  Report Type: Spontaneous
  Country: US (occurrence: None)
  Receive Date: 20140604
  Receipt Date: 20141010
  Transmission Date: 20150528
  Serious: No
  Sender: FDA-Public Use
  Company Number: 163-POMAL-14042681

PATIENT
  Age: 79 Year
  Sex: Male
  Weight: 72.6 kg

DRUGS (24)
  1. AMBIEN ER (ZOLPIDEM TARTRATE) [Concomitant]
  2. COZAAR [Concomitant]
     Active Substance: LOSARTAN POTASSIUM
  3. SPIRIVA (TIOTROPIUM BROMIDE) [Concomitant]
  4. ACYCLOVIR (ACICLOVIR) [Concomitant]
  5. ASPIRIN (ACETYLSALICYLIC ACID) [Concomitant]
     Active Substance: ASPIRIN
  6. CLOBETASOL EMULSION (CLOBETASOL) [Concomitant]
  7. SYNTHROID [Concomitant]
     Active Substance: LEVOTHYROXINE SODIUM
  8. ZOMETA [Concomitant]
     Active Substance: ZOLEDRONIC ACID
  9. DOVONEX (CALCIPOTRIOL) [Concomitant]
  10. LOSARTAN [Concomitant]
     Active Substance: LOSARTAN
  11. DECARDON (DEXAMETHASONE) [Concomitant]
  12. PREDNISONE. [Concomitant]
     Active Substance: PREDNISONE
  13. SOLU-MEDROL [Concomitant]
     Active Substance: METHYLPREDNISOLONE SODIUM SUCCINATE
  14. ZOCOR [Concomitant]
     Active Substance: SIMVASTATIN
  15. CALTRATE 600+D [Concomitant]
  16. SIMVASTATIN. [Concomitant]
     Active Substance: SIMVASTATIN
  17. PLAVIX [Concomitant]
     Active Substance: CLOPIDOGREL BISULFATE
  18. CARDIZEM ER (DILTIAZEM HYDROCHLORIDE) [Concomitant]
  19. HYDRALAZINE [Concomitant]
     Active Substance: HYDRALAZINE HYDROCHLORIDE
  20. TOPROL XR (METOPROLOL SUCCINATE) [Concomitant]
  21. POMALYST [Suspect]
     Active Substance: POMALIDOMIDE
     Indication: PLASMA CELL MYELOMA
     Dosage: TEMPORARILY INTERRUPTED; 21 IN 21 D
     Route: 048
     Dates: start: 201402
  22. CENTRUM SILVER [Concomitant]
     Active Substance: VITAMINS
  23. ZOFRAN (ONDANSETRON HYDROCHLORIDE) [Concomitant]
  24. VELCADE [Concomitant]
     Active Substance: BORTEZOMIB

REACTIONS (2)
  - Adverse reaction [None]
  - Upper respiratory tract infection bacterial [None]
